FAERS Safety Report 8305723-X (Version None)
Quarter: 2012Q2

REPORT INFORMATION
  Report Type: 
  Country: None (occurrence: None)
  Receive Date: 20120423
  Receipt Date: 20120417
  Transmission Date: 20120825
  Serious: Yes (Death, Other)
  Sender: FDA-Public Use
  Company Number: US-JNJFOC-20120409136

PATIENT

DRUGS (8)
  1. CYCLOPHOSPHAMIDE [Suspect]
     Indication: LYMPHOMA
     Route: 065
  2. DOXORUBICIN HCL [Suspect]
     Indication: LYMPHOMA
     Route: 042
  3. DEXAMETHASONE [Suspect]
     Indication: LYMPHOMA
     Route: 065
  4. VINCRISTINE [Suspect]
     Indication: LYMPHOMA
     Route: 065
  5. METHOTREXATE [Suspect]
     Indication: LYMPHOMA
     Route: 065
  6. PREDNISONE TAB [Suspect]
     Indication: LYMPHOMA
     Route: 065
  7. CYTARABINE [Suspect]
     Indication: LYMPHOMA
     Route: 065
  8. RITUXIMAB [Suspect]
     Indication: LYMPHOMA
     Route: 065

REACTIONS (3)
  - LYMPHOMA [None]
  - DEATH [None]
  - NERVOUS SYSTEM DISORDER [None]
